FAERS Safety Report 12528140 (Version 1)
Quarter: 2016Q3

REPORT INFORMATION
  Report Type: Spontaneous
  Country: US (occurrence: US)
  Receive Date: 20160705
  Receipt Date: 20160705
  Transmission Date: 20161109
  Serious: Yes (Other)
  Sender: FDA-Public Use
  Company Number: US-SA-2016SA118941

PATIENT
  Sex: Male

DRUGS (1)
  1. AMBIEN [Suspect]
     Active Substance: ZOLPIDEM TARTRATE
     Route: 065

REACTIONS (6)
  - Multiple sclerosis relapse [Unknown]
  - Deafness unilateral [Unknown]
  - Aspartate aminotransferase increased [Unknown]
  - Mobility decreased [Unknown]
  - Hypoaesthesia [Unknown]
  - Meniere^s disease [Unknown]
